FAERS Safety Report 5591230-4 (Version None)
Quarter: 2008Q1

REPORT INFORMATION
  Report Type: 
  Country: None (occurrence: None)
  Receive Date: 20080110
  Receipt Date: 20080110
  Transmission Date: 20080703
  Serious: Yes (Other)
  Sender: FDA-Public Use
  Company Number: None

PATIENT
  Age: 52 Year
  Sex: Male
  Weight: 90.7194 kg

DRUGS (2)
  1. CHANTIX [Suspect]
     Indication: SMOKING CESSATION THERAPY
     Dosage: 1MG  BID  PO
     Route: 048
     Dates: start: 20071110, end: 20071120
  2. ZOCOR [Concomitant]

REACTIONS (2)
  - MYALGIA [None]
  - PARAESTHESIA [None]
